FAERS Safety Report 6603599-X (Version None)
Quarter: 2010Q1

REPORT INFORMATION
  Report Type: 
  Country: None (occurrence: None)
  Receive Date: 20100226
  Receipt Date: 20091112
  Transmission Date: 20100710
  Serious: No
  Sender: FDA-Public Use
  Company Number: A0816772A

PATIENT
  Sex: Female

DRUGS (10)
  1. VALTREX [Suspect]
     Dosage: 2G TWICE PER DAY
     Route: 048
     Dates: start: 20091109, end: 20091110
  2. DIGOXIN [Concomitant]
  3. SPIRONOLACTONE [Concomitant]
  4. WATER PILL [Concomitant]
  5. OXYBUTON [Concomitant]
  6. SUPER B COMPLEX [Concomitant]
  7. POTASSIUM [Concomitant]
  8. FUROSEMIDE [Concomitant]
  9. ICAPS [Concomitant]
  10. MULTI-VITAMIN [Concomitant]

REACTIONS (2)
  - DRUG INEFFECTIVE [None]
  - ORAL HERPES [None]
